FAERS Safety Report 4322310-9 (Version None)
Quarter: 2004Q1

REPORT INFORMATION
  Report Type: 
  Country: None (occurrence: None)
  Receive Date: 20040319
  Receipt Date: 20040304
  Transmission Date: 20041129
  Serious: Yes (Hospitalization, Other)
  Sender: FDA-Public Use
  Company Number: 2004030004

PATIENT
  Age: 19 Year
  Sex: Male

DRUGS (1)
  1. DEPEN [Suspect]
     Indication: HEPATO-LENTICULAR DEGENERATION
     Dosage: 400 MG/DAILY, PO
     Route: 048

REACTIONS (5)
  - DISEASE RECURRENCE [None]
  - DYSTONIA [None]
  - HEPATO-LENTICULAR DEGENERATION [None]
  - LOSS OF CONSCIOUSNESS [None]
  - STATUS EPILEPTICUS [None]
